FAERS Safety Report 20588947 (Version 3)
Quarter: 2022Q4

REPORT INFORMATION
  Report Type: Spontaneous
  Country: NL (occurrence: NL)
  Receive Date: 20220314
  Receipt Date: 20221031
  Transmission Date: 20230112
  Serious: Yes (Other)
  Sender: FDA-Public Use
  Company Number: NL-PFIZER INC-202101352782

PATIENT
  Age: 13 Year
  Sex: Male

DRUGS (2)
  1. PREGABALIN [Suspect]
     Active Substance: PREGABALIN
     Indication: Product used for unknown indication
     Dosage: 150 MG (DOSE (MGKG-1)/3.0)
     Route: 065
  2. PREGABALIN [Suspect]
     Active Substance: PREGABALIN
     Dosage: 3 MILLIGRAM/KILOGRAM
     Route: 065

REACTIONS (9)
  - Tachycardia [Unknown]
  - Muscle twitching [Unknown]
  - Dizziness [Unknown]
  - Accidental overdose [Unknown]
  - Nausea [Unknown]
  - Angina pectoris [Unknown]
  - Somnolence [Unknown]
  - Abdominal pain upper [Unknown]
  - Accidental exposure to product [Unknown]
